FAERS Safety Report 6518523-8 (Version None)
Quarter: 2009Q4

REPORT INFORMATION
  Report Type: 
  Country: None (occurrence: None)
  Receive Date: 20091226
  Receipt Date: 20091221
  Transmission Date: 20100525
  Serious: Yes (Death, Life-Threatening)
  Sender: FDA-Public Use
  Company Number: DE-JNJFOC-20091205585

PATIENT
  Age: 76 Year
  Sex: Female

DRUGS (18)
  1. HALDOL [Suspect]
     Indication: DRUG USE FOR UNKNOWN INDICATION
     Route: 048
     Dates: start: 20090513, end: 20090612
  2. HALDOL [Suspect]
     Route: 048
     Dates: start: 20090513, end: 20090612
  3. HALDOL [Suspect]
     Route: 048
     Dates: start: 20090513, end: 20090612
  4. REMINYL [Suspect]
     Indication: DRUG USE FOR UNKNOWN INDICATION
     Route: 048
     Dates: end: 20090612
  5. REMINYL [Suspect]
     Route: 048
     Dates: end: 20090612
  6. REMINYL [Suspect]
     Route: 048
     Dates: end: 20090612
  7. SEROQUEL [Suspect]
     Indication: DRUG USE FOR UNKNOWN INDICATION
     Route: 048
     Dates: end: 20090612
  8. SEROQUEL [Suspect]
     Route: 048
     Dates: end: 20090612
  9. ALLOPURINOL [Concomitant]
     Route: 048
     Dates: end: 20090612
  10. SIMVAHEXAL [Concomitant]
     Route: 048
     Dates: end: 20090612
  11. BISOPROLOL FUMARATE [Concomitant]
     Route: 048
     Dates: end: 20090612
  12. TORSEMIDE [Concomitant]
     Route: 048
     Dates: end: 20090612
  13. LEVOTHYROXINE SODIUM [Concomitant]
     Route: 048
     Dates: end: 20090612
  14. DELIX [Concomitant]
     Route: 048
     Dates: end: 20090612
  15. JENASPIRON [Concomitant]
     Route: 048
     Dates: end: 20090612
  16. CLEXANE [Concomitant]
     Route: 058
     Dates: end: 20090612
  17. ACTRAPID [Concomitant]
     Route: 058
     Dates: end: 20090612
  18. PROTAPHANE [Concomitant]
     Route: 058
     Dates: end: 20090612

REACTIONS (1)
  - MYOCARDIAL INFARCTION [None]
